FAERS Safety Report 5874009-5 (Version None)
Quarter: 2008Q3

REPORT INFORMATION
  Report Type: 
  Country: None (occurrence: None)
  Receive Date: 20080908
  Receipt Date: 20080826
  Transmission Date: 20090109
  Serious: Yes (Hospitalization, Other)
  Sender: FDA-Public Use
  Company Number: CA-ELI_LILLY_AND_COMPANY-CA200808005943

PATIENT
  Sex: Male
  Weight: 54.875 kg

DRUGS (8)
  1. ZYPREXA ZYDIS [Suspect]
     Dosage: 0.5 D/F, DAILY (1/D)
     Route: 048
     Dates: start: 20080701, end: 20080801
  2. ZYPREXA ZYDIS [Suspect]
     Dosage: 10 MG, DAILY (1/D)
     Route: 048
     Dates: start: 20080801
  3. BUSCOPAN [Concomitant]
     Indication: COLITIS
     Dosage: 10 MG, 2/D
     Route: 048
     Dates: start: 20030101
  4. CITALOPRAM HYDROBROMIDE [Concomitant]
     Indication: DEPRESSION
     Dosage: 20 MG, DAILY (1/D)
     Route: 048
  5. CLONAZEPAM [Concomitant]
     Indication: ANXIETY
     Dosage: 2 MG, 2/D
     Route: 048
     Dates: start: 20000101
  6. DOCUSATE SODIUM [Concomitant]
     Indication: FAECES HARD
     Dosage: 100 MG, DAILY (1/D)
     Route: 048
     Dates: start: 20070101
  7. IMIPRAMINE [Concomitant]
     Indication: SLEEP DISORDER
     Dosage: 50 MG, DAILY (1/D)
     Route: 048
     Dates: start: 20050101
  8. CARBAMAZEPINE [Concomitant]
     Indication: EPILEPSY
     Dosage: 200 MG, DAILY (1/D)
     Route: 048
     Dates: start: 20010101

REACTIONS (21)
  - BURNING SENSATION [None]
  - CHEST PAIN [None]
  - CONFUSIONAL STATE [None]
  - DRY EYE [None]
  - DYSPHAGIA [None]
  - FEAR [None]
  - FLIGHT OF IDEAS [None]
  - GASTRIC CANCER [None]
  - GASTROINTESTINAL CARCINOMA [None]
  - INSOMNIA [None]
  - JOINT SWELLING [None]
  - NON-CONSUMMATION [None]
  - OEDEMA PERIPHERAL [None]
  - OESOPHAGEAL CARCINOMA [None]
  - PAIN IN EXTREMITY [None]
  - PARANOIA [None]
  - PROTEIN DEFICIENCY ANAEMIA [None]
  - SUICIDE ATTEMPT [None]
  - TREMOR [None]
  - VISUAL IMPAIRMENT [None]
  - WEIGHT DECREASED [None]
